FAERS Safety Report 9004627 (Version 1)
Quarter: 2013Q1

REPORT INFORMATION
  Report Type: Spontaneous
  Country: US (occurrence: None)
  Receive Date: 20130103
  Receipt Date: 20130103
  Transmission Date: 20140127
  Serious: Yes (Other)
  Sender: FDA-Public Use
  Company Number: None

PATIENT
  Age: 77 Year
  Sex: Male

DRUGS (1)
  1. SIMPONI [Suspect]
     Dosage: 50MG Q 30DAYS SUBQ
     Route: 058
     Dates: start: 20120928, end: 20121231

REACTIONS (5)
  - Pain in extremity [None]
  - Pruritus [None]
  - Ear infection fungal [None]
  - Fungal rhinitis [None]
  - Fungal skin infection [None]
